FAERS Safety Report 12090961 (Version 1)
Quarter: 2016Q1

REPORT INFORMATION
  Report Type: Spontaneous
  Country: US (occurrence: US)
  Receive Date: 20160218
  Receipt Date: 20160218
  Transmission Date: 20160526
  Serious: Yes (Life-Threatening, Hospitalization)
  Sender: FDA-Public Use
  Company Number: US-ABBVIE-16P-163-1547371-00

PATIENT
  Age: 39 Year
  Sex: Female

DRUGS (3)
  1. LACTULOSE. [Concomitant]
     Active Substance: LACTULOSE
     Indication: PRODUCT USED FOR UNKNOWN INDICATION
  2. THIAMINE. [Concomitant]
     Active Substance: THIAMINE
     Indication: PRODUCT USED FOR UNKNOWN INDICATION
  3. VALPROIC ACID. [Suspect]
     Active Substance: VALPROIC ACID
     Indication: AFFECTIVE DISORDER
     Route: 065

REACTIONS (7)
  - Carnitine deficiency [Recovered/Resolved]
  - Unresponsive to stimuli [Recovered/Resolved]
  - Ammonia increased [Recovered/Resolved]
  - Coma scale abnormal [Recovered/Resolved]
  - Myoclonus [Recovered/Resolved]
  - Lethargy [Recovered/Resolved]
  - Hyperammonaemic encephalopathy [Recovered/Resolved]
